FAERS Safety Report 7998978-2 (Version None)
Quarter: 2011Q4

REPORT INFORMATION
  Report Type: 
  Country: None (occurrence: None)
  Receive Date: 20111221
  Receipt Date: 20111220
  Transmission Date: 20120403
  Serious: Yes (Other)
  Sender: FDA-Public Use
  Company Number: BE-ABBOTT-11P-013-0880289-00

PATIENT
  Sex: Male

DRUGS (3)
  1. HUMIRA [Suspect]
     Indication: PSORIASIS
     Dates: start: 20100101, end: 20100101
  2. HUMIRA [Suspect]
     Dates: end: 20111001
  3. HUMIRA [Suspect]

REACTIONS (5)
  - EPIDIDYMITIS [None]
  - NEUROMA [None]
  - LIVER FUNCTION TEST ABNORMAL [None]
  - ERYSIPELAS [None]
  - GUTTATE PSORIASIS [None]
